FAERS Safety Report 4404181-5 (Version None)
Quarter: 2004Q3

REPORT INFORMATION
  Report Type: 
  Country: None (occurrence: None)
  Receive Date: 20040721
  Receipt Date: 20040721
  Transmission Date: 20050211
  Serious: Yes (Hospitalization)
  Sender: FDA-Public Use
  Company Number: None

PATIENT
  Age: 67 Year
  Sex: Male
  Weight: 79.1 kg

DRUGS (14)
  1. COUMADIN [Suspect]
     Dosage: ORAL
     Route: 048
  2. ROSIGLITAZONE MALEATE [Concomitant]
  3. RANITIDINE HCL [Concomitant]
  4. NITROGLYCERIN [Concomitant]
  5. CLONIDINE HCL [Concomitant]
  6. NORTRIPTYLINE HCL [Concomitant]
  7. METOPROLOL TARTRATE [Concomitant]
  8. TAMSULOSIN HCL [Concomitant]
  9. SIMVASTATIN [Concomitant]
  10. GLIPIZIDE [Concomitant]
  11. FUROSEMIDE [Concomitant]
  12. CLONIDINE HCL [Concomitant]
  13. MORPHINE SULFATE [Concomitant]
  14. PHYTONADIONE [Concomitant]

REACTIONS (2)
  - GASTROINTESTINAL HAEMORRHAGE [None]
  - INTERNATIONAL NORMALISED RATIO INCREASED [None]
